FAERS Safety Report 4483400-3 (Version None)
Quarter: 2004Q4

REPORT INFORMATION
  Report Type: 
  Country: None (occurrence: None)
  Receive Date: 20041020
  Receipt Date: 20041018
  Transmission Date: 20050328
  Serious: Yes (Hospitalization)
  Sender: FDA-Public Use
  Company Number: UKP04000391

PATIENT
  Age: 61 Year
  Sex: Male
  Weight: 60 kg

DRUGS (4)
  1. ACTONEL [Suspect]
     Indication: OSTEOPOROSIS
     Dosage: 35 MG, 1/WEEK, ORAL
     Route: 048
     Dates: start: 20040929, end: 20040930
  2. BISOPROLOL FUMARATE [Concomitant]
  3. PREDNISOLONE [Concomitant]
  4. ATORVASTATIN (ATORVASTATIN) [Concomitant]

REACTIONS (2)
  - HYPOXIA [None]
  - MYALGIA [None]
